FAERS Safety Report 9734099 (Version 2)
Quarter: 2014Q1

REPORT INFORMATION
  Report Type: Spontaneous
  Country: US (occurrence: US)
  Receive Date: 20131205
  Receipt Date: 20140121
  Transmission Date: 20141002
  Serious: Yes (Other)
  Sender: FDA-Public Use
  Company Number: US-BAXTER-2013BAX047693

PATIENT
  Sex: Male

DRUGS (1)
  1. ARTISS [Suspect]
     Indication: SURGERY
     Route: 061
     Dates: start: 20131028, end: 20131028

REACTIONS (1)
  - Graft complication [Unknown]
